FAERS Safety Report 19777537 (Version 1)
Quarter: 2021Q3

REPORT INFORMATION
  Report Type: Spontaneous
  Country: US (occurrence: US)
  Receive Date: 20210901
  Receipt Date: 20210901
  Transmission Date: 20211014
  Serious: No
  Sender: FDA-Public Use
  Company Number: US-SA-2021SA284916

PATIENT
  Age: 74 Year
  Sex: Female
  Weight: 88.45 kg

DRUGS (1)
  1. AUBAGIO [Suspect]
     Active Substance: TERIFLUNOMIDE
     Indication: MULTIPLE SCLEROSIS
     Dosage: 7 MG, QD
     Route: 048
     Dates: start: 202105

REACTIONS (4)
  - Foot fracture [Unknown]
  - Depression [Unknown]
  - Decreased interest [Unknown]
  - Anhedonia [Unknown]

NARRATIVE: CASE EVENT DATE: 202108
